FAERS Safety Report 25203128 (Version 1)
Quarter: 2025Q2

REPORT INFORMATION
  Report Type: Spontaneous
  Country: US (occurrence: US)
  Receive Date: 20250416
  Receipt Date: 20250416
  Transmission Date: 20250716
  Serious: Yes (Death, Life-Threatening, Hospitalization)
  Sender: AMGEN
  Company Number: US-AMGEN-USASP2025066129

PATIENT
  Age: 83 Year
  Sex: Male

DRUGS (1)
  1. PREDNISONE [Suspect]
     Active Substance: PREDNISONE
     Indication: Rheumatoid arthritis
     Route: 065

REACTIONS (11)
  - Death [Fatal]
  - Acute respiratory failure [Unknown]
  - Scedosporium infection [Unknown]
  - Brain abscess [Unknown]
  - Pneumonia necrotising [Unknown]
  - Ulcer [Unknown]
  - Endophthalmitis [Unknown]
  - Sigmoid sinus thrombosis [Unknown]
  - Neurotoxicity [Unknown]
  - Hepatotoxicity [Unknown]
  - Transverse sinus thrombosis [Unknown]
